FAERS Safety Report 7729356-9 (Version None)
Quarter: 2011Q3

REPORT INFORMATION
  Report Type: 
  Country: None (occurrence: None)
  Receive Date: 20110906
  Receipt Date: 20110831
  Transmission Date: 20111222
  Serious: Yes (Death)
  Sender: FDA-Public Use
  Company Number: US-ASTELLAS-2011US003914

PATIENT
  Sex: Female
  Weight: 100 kg

DRUGS (2)
  1. CELLCEPT [Concomitant]
     Indication: PRODUCT USED FOR UNKNOWN INDICATION
     Dosage: UNK
     Route: 065
  2. PROGRAF [Suspect]
     Indication: RENAL TRANSPLANT
     Dosage: 1 MG, BID
     Route: 048
     Dates: start: 20030806, end: 20110630

REACTIONS (3)
  - NEOPLASM MALIGNANT [None]
  - UNEVALUABLE EVENT [None]
  - THROMBOSIS [None]
